FAERS Safety Report 13792642 (Version 1)
Quarter: 2017Q3

REPORT INFORMATION
  Report Type: Spontaneous
  Country: US (occurrence: US)
  Receive Date: 20170725
  Receipt Date: 20170725
  Transmission Date: 20171127
  Serious: No
  Sender: FDA-Public Use
  Company Number: US-TESARO, INC.-US-2017TSO00950

PATIENT

DRUGS (4)
  1. ZEJULA [Suspect]
     Active Substance: NIRAPARIB
     Indication: OVARIAN CANCER METASTATIC
     Dosage: 200 MG, QD PM
     Route: 048
     Dates: start: 20170601
  2. ZEJULA [Suspect]
     Active Substance: NIRAPARIB
     Indication: METASTASES TO CENTRAL NERVOUS SYSTEM
  3. TOPROL XL [Concomitant]
     Active Substance: METOPROLOL SUCCINATE
     Indication: PRODUCT USED FOR UNKNOWN INDICATION
     Dosage: UNK
  4. SIMVASTATIN. [Concomitant]
     Active Substance: SIMVASTATIN
     Indication: PRODUCT USED FOR UNKNOWN INDICATION
     Dosage: 25 MG, QPM

REACTIONS (5)
  - Constipation [Unknown]
  - Decreased appetite [Unknown]
  - Heart rate irregular [Recovered/Resolved]
  - Blood pressure increased [Unknown]
  - Nausea [Unknown]

NARRATIVE: CASE EVENT DATE: 201706
